FAERS Safety Report 8031728 (Version 5)
Quarter: 2012Q4

REPORT INFORMATION
  Report Type: 
  Country: US (occurrence: US)
  Receive Date: 20110712
  Receipt Date: 20121226
  Transmission Date: 20130627
  Serious: Yes (Other)
  Sender: FDA-Public Use
  Company Number: US-ASTRAZENECA-2011SE35385

PATIENT
  Age: 67 Year
  Sex: Female

DRUGS (33)
  1. RHINOCORT AQUA [Suspect]
     Indication: SINUSITIS
     Dosage: 32 MCG THREE TIMES A DAY AS NEEDED, TWO SPRAYS EACH NOSTRIL
     Route: 045
  2. RHINOCORT AQUA [Suspect]
     Indication: SINUS CONGESTION
     Dosage: 32 MCG THREE TIMES A DAY AS NEEDED, TWO SPRAYS EACH NOSTRIL
     Route: 045
  3. NEXIUM [Suspect]
     Indication: REFLUX LARYNGITIS
     Route: 048
  4. NEXIUM [Suspect]
     Indication: REFLUX LARYNGITIS
     Route: 048
  5. CRESTOR [Suspect]
     Indication: HYPERCHOLESTEROLAEMIA
     Route: 048
  6. EPIPEN [Concomitant]
     Indication: ALLERGY TO ARTHROPOD STING
  7. TRAZODONE [Concomitant]
     Indication: INSOMNIA
  8. ULTRAM [Concomitant]
     Indication: COMPLEX REGIONAL PAIN SYNDROME
     Dosage: 2 PILLS 3-4 TIMES A DAY AS NEEDED
  9. LYRICA [Concomitant]
     Indication: POST-TRAUMATIC HEADACHE
  10. LYRICA [Concomitant]
     Indication: FIBROMYALGIA
  11. VICODIN/APAP [Concomitant]
     Indication: FIBROMYALGIA
     Dosage: 5/500 MG AS NEEDED/ ONE A DAY
  12. CYCLOBENZAPRINE [Concomitant]
     Indication: COMPLEX REGIONAL PAIN SYNDROME
  13. CYCLOBENZAPRINE [Concomitant]
     Indication: ARTHRITIS
  14. PROCHOLORPERAZINE [Concomitant]
     Indication: NAUSEA
  15. PROVENTIL [Concomitant]
     Indication: CHEST DISCOMFORT
  16. PROVENTIL [Concomitant]
     Indication: COUGH
  17. PROVENTIL [Concomitant]
     Indication: ASTHMA
  18. PROVENTIL [Concomitant]
     Indication: CHEST DISCOMFORT
  19. PROVENTIL [Concomitant]
     Indication: COUGH
  20. PROVENTIL [Concomitant]
     Indication: ASTHMA
  21. NAPROXEN [Concomitant]
     Indication: ARTHRITIS
  22. NAPROXEN [Concomitant]
     Indication: TEMPOROMANDIBULAR JOINT SYNDROME
  23. OXYCODONE [Concomitant]
     Indication: ARTHRITIS
     Dosage: 5/325 MG AS NEEDED
  24. CARISOPRODOL [Concomitant]
     Indication: TEMPOROMANDIBULAR JOINT SYNDROME
  25. AMOXICILLIN [Concomitant]
     Dosage: ONE HOUR BEFORE DENTAL APPT.
  26. CENTRUM SILVER [Concomitant]
     Indication: VITAMIN SUPPLEMENTATION
     Dosage: ONE A DAY
  27. VISINE [Concomitant]
     Indication: DRY EYE
     Dosage: TWO DROPS EACH EYE, 3 TIMES A DAY
  28. ASPIRIN [Concomitant]
     Indication: BLOOD CHOLESTEROL INCREASED
  29. VIACTIV-PLUS D [Concomitant]
     Indication: OSTEOPOROSIS
     Dosage: TWO A DAY
  30. TUMS ULTRA STRENGTH [Concomitant]
     Indication: DYSPEPSIA
     Dosage: AS NEEDED
  31. CLARINEX-D [Concomitant]
     Indication: SINUSITIS
     Dosage: 5-240 MG/ ONE TABLET DAILY/AS NEEDED
  32. FLEXERIL [Concomitant]
  33. ADVAIR [Concomitant]

REACTIONS (11)
  - Meniscus injury [Unknown]
  - Fall [Unknown]
  - Trigger finger [Unknown]
  - Carpal tunnel syndrome [Unknown]
  - Dyspnoea [Unknown]
  - Nerve injury [Unknown]
  - Pain [Unknown]
  - General physical health deterioration [Unknown]
  - Dyspepsia [Unknown]
  - Off label use [Unknown]
  - Drug dose omission [Unknown]
